FAERS Safety Report 18270190 (Version 1)
Quarter: 2020Q3

REPORT INFORMATION
  Report Type: Report from Study
  Country: CA (occurrence: CA)
  Receive Date: 20200915
  Receipt Date: 20200915
  Transmission Date: 20201103
  Serious: Yes (Other)
  Sender: FDA-Public Use
  Company Number: CA-JNJFOC-20200126404

PATIENT
  Age: 17 Year
  Sex: Female
  Weight: 89 kg

DRUGS (1)
  1. REMICADE [Suspect]
     Active Substance: INFLIXIMAB
     Indication: CROHN^S DISEASE
     Route: 042
     Dates: start: 20170424

REACTIONS (10)
  - Off label use [Unknown]
  - Chills [Unknown]
  - Diarrhoea [Not Recovered/Not Resolved]
  - Haematochezia [Unknown]
  - Nausea [Unknown]
  - Ear infection [Unknown]
  - Product use issue [Unknown]
  - Abdominal pain [Unknown]
  - Frequent bowel movements [Not Recovered/Not Resolved]
  - Fatigue [Unknown]

NARRATIVE: CASE EVENT DATE: 20170424
